FAERS Safety Report 9841038 (Version 1)
Quarter: 2013Q4

REPORT INFORMATION
  Report Type: Spontaneous
  Country: US (occurrence: None)
  Receive Date: 20131213
  Receipt Date: 20131213
  Transmission Date: 20140711
  Serious: Yes (Hospitalization)
  Sender: FDA-Public Use
  Company Number: 2013AP007662

PATIENT
  Age: 49 Year
  Sex: Female

DRUGS (2)
  1. LISINOPRIL TABLETS [Suspect]
     Indication: HYPERTENSION
  2. METFORMIN [Concomitant]

REACTIONS (3)
  - Angioedema [None]
  - Pruritus [None]
  - Diarrhoea [None]
